FAERS Safety Report 4319342-3 (Version None)
Quarter: 2004Q1

REPORT INFORMATION
  Report Type: 
  Country: None (occurrence: None)
  Receive Date: 20040316
  Receipt Date: 20040304
  Transmission Date: 20041129
  Serious: No
  Sender: FDA-Public Use
  Company Number: 2004SE01268

PATIENT
  Age: 15 Month
  Sex: Male
  Weight: 10.5 kg

DRUGS (1)
  1. EMLA [Suspect]
     Indication: LOCAL ANAESTHESIA
     Dosage: 1 DF ONCE TP
     Route: 061

REACTIONS (3)
  - HYPOTONIA [None]
  - MALAISE [None]
  - PALLOR [None]
